FAERS Safety Report 13500264 (Version 2)
Quarter: 2017Q2

REPORT INFORMATION
  Report Type: Report from Study
  Country: US (occurrence: US)
  Receive Date: 20170501
  Receipt Date: 20170504
  Transmission Date: 20170830
  Serious: Yes (Death)
  Sender: FDA-Public Use
  Company Number: US-VIFOR (INTERNATIONAL) INC.-VIT-2017-04626

PATIENT
  Age: 77 Year
  Sex: Male

DRUGS (5)
  1. LANTUS [Concomitant]
     Active Substance: INSULIN GLARGINE
  2. ALLOPURINOL. [Concomitant]
     Active Substance: ALLOPURINOL
  3. METOPROLOL. [Concomitant]
     Active Substance: METOPROLOL
  4. VELTASSA [Suspect]
     Active Substance: PATIROMER
     Indication: HYPERLIPIDAEMIA
     Dates: start: 20170407
  5. RANEXA [Concomitant]
     Active Substance: RANOLAZINE

REACTIONS (2)
  - Death [Fatal]
  - Off label use [Unknown]

NARRATIVE: CASE EVENT DATE: 20170415
